FAERS Safety Report 19212545 (Version 3)
Quarter: 2021Q3

REPORT INFORMATION
  Report Type: Report from Study
  Country: DE (occurrence: DE)
  Receive Date: 20210504
  Receipt Date: 20210705
  Transmission Date: 20211014
  Serious: Yes (Other)
  Sender: FDA-Public Use
  Company Number: DE-BIOGEN-2021BI01007430

PATIENT
  Age: 66 Year
  Sex: Female

DRUGS (6)
  1. SULPIRID [Concomitant]
     Active Substance: SULPIRIDE
     Indication: VERTIGO
     Dosage: 150 MG 1?0?0
     Route: 065
  2. EFEROX [Concomitant]
     Active Substance: LEVOTHYROXINE SODIUM
     Indication: GOITRE
     Dosage: 125 UG 1?0?0
     Route: 065
     Dates: start: 20090201
  3. LEVETIRACETAM. [Concomitant]
     Active Substance: LEVETIRACETAM
     Indication: EPILEPSY
     Dosage: 500 MG 1?0?1
     Route: 065
     Dates: start: 20111001
  4. TYSABRI [Suspect]
     Active Substance: NATALIZUMAB
     Indication: MULTIPLE SCLEROSIS
     Route: 065
     Dates: start: 20090805
  5. MADOPAR/BENSERAZID [Concomitant]
     Indication: TREMOR
     Dosage: 100/25MG 1,5?1,5?0?1,5
     Route: 065
     Dates: start: 20110601
  6. MIRTAZAPIN [Concomitant]
     Active Substance: MIRTAZAPINE
     Indication: DEPRESSION
     Dosage: 30 MG 0?0?1
     Route: 065

REACTIONS (1)
  - Myelodysplastic syndrome [Not Recovered/Not Resolved]

NARRATIVE: CASE EVENT DATE: 20201126
